FAERS Safety Report 7524457-2 (Version None)
Quarter: 2011Q2

REPORT INFORMATION
  Report Type: 
  Country: None (occurrence: None)
  Receive Date: 20110606
  Receipt Date: 20110120
  Transmission Date: 20111010
  Serious: Yes (Hospitalization, Other)
  Sender: FDA-Public Use
  Company Number: US-BAYER-201038182NA

PATIENT
  Sex: Female
  Weight: 169.16 kg

DRUGS (14)
  1. SYNTHROID [Concomitant]
     Route: 048
  2. METFORMIN HCL [Concomitant]
     Dosage: 500 MG, QD
     Route: 048
  3. ATENOLOL [Concomitant]
     Dosage: 100 MG, QD
     Route: 048
  4. COUMADIN [Concomitant]
     Route: 048
  5. YASMIN [Suspect]
     Indication: ACNE
     Dosage: UNK
     Dates: start: 20040101, end: 20060101
  6. THYROID TAB [Concomitant]
     Dosage: UNK UNK, QD
     Route: 048
  7. ORAL CONTRACEPTIVE NOS [Concomitant]
     Route: 048
  8. INSULIN [Concomitant]
  9. TRIAMETERENE/HCTZ [Concomitant]
     Dosage: UNK UNK, QD
     Route: 048
  10. LISINOPRIL [Concomitant]
     Dosage: 10 MG, QD
     Route: 048
  11. DROSPIRENONE AND ETHINYL ESTRADIOL [Suspect]
     Indication: ACNE
     Dosage: UNK
     Route: 048
     Dates: start: 20040101, end: 20060101
  12. PROTONIX [Concomitant]
     Dosage: 40 MG, UNK
  13. YAZ [Suspect]
     Indication: ACNE
     Dosage: UNK
     Dates: start: 20040101, end: 20060101
  14. LEVOTHYROXINE SODIUM [Concomitant]
     Dosage: 75 MCG/24HR, UNK
     Route: 048

REACTIONS (3)
  - PERFORATED ULCER [None]
  - PAIN [None]
  - PULMONARY EMBOLISM [None]
